FAERS Safety Report 4598903-0 (Version None)
Quarter: 2005Q1

REPORT INFORMATION
  Report Type: 
  Country: None (occurrence: None)
  Receive Date: 20050304
  Receipt Date: 20030723
  Transmission Date: 20050727
  Serious: Yes (Life-Threatening)
  Sender: FDA-Public Use
  Company Number: ES-ABBOTT-03P-144-0225717-00

PATIENT
  Sex: Female
  Weight: 59 kg

DRUGS (19)
  1. HUMIRA [Suspect]
     Indication: RHEUMATOID ARTHRITIS
     Dosage: 40 MG
     Route: 058
     Dates: start: 20030204, end: 20030624
  2. METHOTREXATE [Concomitant]
     Indication: RHEUMATOID ARTHRITIS
     Route: 048
     Dates: start: 19990113, end: 20000419
  3. METHOTREXATE [Concomitant]
     Route: 048
     Dates: start: 20000420, end: 20010410
  4. METHOTREXATE [Concomitant]
     Route: 030
     Dates: start: 20010411, end: 20020109
  5. METHOTREXATE [Concomitant]
     Route: 048
     Dates: start: 19960601, end: 19970124
  6. METHOTREXATE [Concomitant]
     Route: 048
     Dates: start: 19970125, end: 19980113
  7. METHOTREXATE [Concomitant]
     Route: 048
     Dates: start: 19980114, end: 19980514
  8. METHOTREXATE [Concomitant]
     Route: 048
     Dates: start: 19980515, end: 19990112
  9. METHOTREXATE [Concomitant]
     Route: 048
     Dates: start: 19950228, end: 19950726
  10. METHOTREXATE [Concomitant]
     Route: 048
     Dates: start: 19950727, end: 19950913
  11. METHOTREXATE [Concomitant]
     Route: 048
     Dates: start: 19950914, end: 19960531
  12. IRBESARTAN [Concomitant]
     Indication: HYPERTENSION
     Route: 048
     Dates: start: 20020507
  13. LEFLUNOMIDE [Concomitant]
     Indication: ARTHRITIS
     Route: 048
     Dates: start: 20020204, end: 20030106
  14. GLICLAZIDE [Concomitant]
     Indication: DIABETES MELLITUS
     Route: 048
     Dates: start: 20020507
  15. ACARBOSE [Concomitant]
     Indication: DIABETES MELLITUS
     Route: 048
     Dates: start: 20020507
  16. CALCITONIN-SALMON [Concomitant]
     Indication: MINERAL SUPPLEMENTATION
     Route: 045
     Dates: start: 20001201
  17. CALCIUM PIDOLATE [Concomitant]
     Indication: MINERAL SUPPLEMENTATION
     Route: 048
     Dates: start: 20000720
  18. IBUPROFEN [Concomitant]
     Indication: ARTHRITIS
     Route: 048
     Dates: start: 19991123
  19. OMEPRAZOLE [Concomitant]
     Indication: PROPHYLAXIS AGAINST GASTROINTESTINAL ULCER
     Route: 048
     Dates: start: 20020507

REACTIONS (1)
  - TUBERCULOSIS [None]
